FAERS Safety Report 8469491-3 (Version None)
Quarter: 2012Q2

REPORT INFORMATION
  Report Type: 
  Country: None (occurrence: None)
  Receive Date: 20120626
  Receipt Date: 20120611
  Transmission Date: 20120825
  Serious: Yes (Other)
  Sender: FDA-Public Use
  Company Number: CHPA2012US012686

PATIENT
  Sex: Female

DRUGS (2)
  1. EXCEDRIN EXTRA STRENGTH TABLETS [Suspect]
     Indication: PROPHYLAXIS
     Dosage: 1 DF, PRN
     Route: 048
     Dates: start: 19920101
  2. ACETAMINOPHEN [Concomitant]
     Indication: MIGRAINE
     Route: 048

REACTIONS (7)
  - GLAUCOMA [None]
  - INCORRECT DRUG ADMINISTRATION DURATION [None]
  - DIPLOPIA [None]
  - OESOPHAGITIS [None]
  - OFF LABEL USE [None]
  - UNDERDOSE [None]
  - HAEMORRHAGE [None]
